FAERS Safety Report 10232399 (Version 1)
Quarter: 2014Q2

REPORT INFORMATION
  Report Type: Spontaneous
  Country: CN (occurrence: CN)
  Receive Date: 20140612
  Receipt Date: 20140612
  Transmission Date: 20141212
  Serious: Yes (Other)
  Sender: FDA-Public Use
  Company Number: CN-ROCHE-1416114

PATIENT
  Age: 56 Year
  Sex: Male

DRUGS (1)
  1. PEGASYS [Suspect]
     Indication: HEPATITIS C
     Dosage: LAST DOSE ON 28/JUN/2013
     Route: 058
     Dates: start: 20130614

REACTIONS (1)
  - White blood cell count decreased [Recovering/Resolving]
